FAERS Safety Report 14567961 (Version 1)
Quarter: 2018Q1

REPORT INFORMATION
  Report Type: Spontaneous
  Country: CH (occurrence: CH)
  Receive Date: 20180223
  Receipt Date: 20180223
  Transmission Date: 20180509
  Serious: Yes (Other)
  Sender: FDA-Public Use
  Company Number: SE-ASTRAZENECA-2018SE20938

PATIENT
  Age: 709 Month
  Sex: Female

DRUGS (26)
  1. NEXIUM [Suspect]
     Active Substance: ESOMEPRAZOLE MAGNESIUM
     Indication: GASTROOESOPHAGEAL REFLUX DISEASE
     Route: 048
  2. IBRANCE [Suspect]
     Active Substance: PALBOCICLIB
     Indication: BREAST CANCER
     Route: 048
     Dates: start: 20170830
  3. IMOVANE [Concomitant]
     Active Substance: ZOPICLONE
  4. MOTILIUM [Suspect]
     Active Substance: DOMPERIDONE
     Route: 048
  5. CALCIMAGON D3 [Concomitant]
     Active Substance: CALCIUM\CHOLECALCIFEROL
  6. FLECTOR [Concomitant]
     Active Substance: DICLOFENAC EPOLAMINE
     Dates: start: 20170926
  7. ESCITALOPRAM [Suspect]
     Active Substance: ESCITALOPRAM OXALATE
     Indication: SCHIZOAFFECTIVE DISORDER
     Route: 048
     Dates: start: 201604
  8. MOTILIUM [Suspect]
     Active Substance: DOMPERIDONE
     Route: 048
  9. ONDANSETRON [Suspect]
     Active Substance: ONDANSETRON
     Route: 048
     Dates: end: 20170914
  10. CONDROSULF [Concomitant]
     Active Substance: SODIUM CHONDROITIN SULFATE
     Dates: end: 201709
  11. EUTHYROX [Concomitant]
     Active Substance: LEVOTHYROXINE SODIUM
  12. IRFEN [Concomitant]
     Active Substance: IBUPROFEN
  13. TARGIN [Concomitant]
     Active Substance: NALOXONE HYDROCHLORIDE\OXYCODONE HYDROCHLORIDE
     Dates: start: 20171110
  14. LAXOBERON [Concomitant]
     Active Substance: SODIUM PICOSULFATE
     Dates: start: 20171031
  15. IBRANCE [Suspect]
     Active Substance: PALBOCICLIB
     Indication: BREAST CANCER
     Route: 048
     Dates: start: 201708, end: 2017
  16. IBRANCE [Suspect]
     Active Substance: PALBOCICLIB
     Indication: BREAST CANCER
     Route: 048
     Dates: start: 201710, end: 2017
  17. OXYNORM [Concomitant]
     Active Substance: OXYCODONE HYDROCHLORIDE
     Dates: start: 20171114
  18. RISPERIDONE. [Suspect]
     Active Substance: RISPERIDONE
     Indication: SCHIZOAFFECTIVE DISORDER
     Route: 048
     Dates: start: 201604
  19. IMODIUM [Suspect]
     Active Substance: LOPERAMIDE HYDROCHLORIDE
     Route: 048
     Dates: end: 20170914
  20. DAFALGAN [Concomitant]
     Active Substance: ACETAMINOPHEN
  21. MOVICOL [Concomitant]
     Active Substance: POLYETHYLENE GLYCOL 3350\POTASSIUM CHLORIDE\SODIUM BICARBONATE\SODIUM CHLORIDE
     Dates: start: 20171028
  22. MYCOSTATIN [Concomitant]
     Active Substance: NYSTATIN
     Dates: start: 20171029, end: 20171111
  23. FASLODEX [Suspect]
     Active Substance: FULVESTRANT
     Indication: BREAST CANCER
     Route: 030
     Dates: start: 201706
  24. IBRANCE [Suspect]
     Active Substance: PALBOCICLIB
     Indication: BREAST CANCER
     Route: 048
  25. TEMGESIC [Concomitant]
     Active Substance: BUPRENORPHINE HYDROCHLORIDE
     Dates: start: 20170920, end: 20170928
  26. CLEXANE [Concomitant]
     Active Substance: ENOXAPARIN SODIUM
     Dates: start: 20170915, end: 20171002

REACTIONS (1)
  - Electrocardiogram QT prolonged [Not Recovered/Not Resolved]

NARRATIVE: CASE EVENT DATE: 201709
